FAERS Safety Report 5019497-1 (Version None)
Quarter: 2006Q2

REPORT INFORMATION
  Report Type: 
  Country: None (occurrence: None)
  Receive Date: 20060605
  Receipt Date: 20060605
  Transmission Date: 20061013
  Serious: Yes (Other)
  Sender: FDA-Public Use
  Company Number: None

PATIENT
  Age: 77 Year
  Sex: Male

DRUGS (2)
  1. PULMICORT [Suspect]
     Indication: ASTHMA
     Dosage: 1 PUFF QD INHAL
     Route: 055
     Dates: start: 20060422, end: 20060526
  2. RHINOCORT-AQUA [Suspect]
     Indication: RHINITIS ALLERGIC
     Dosage: 1 PUFF EACH NOSTRIL QD INHAL
     Route: 055
     Dates: start: 20060422, end: 20060526

REACTIONS (2)
  - PSYCHOTIC DISORDER [None]
  - THINKING ABNORMAL [None]
